FAERS Safety Report 25829576 (Version 1)
Quarter: 2025Q3

REPORT INFORMATION
  Report Type: Spontaneous
  Country: US (occurrence: US)
  Receive Date: 20250922
  Receipt Date: 20250922
  Transmission Date: 20251020
  Serious: Yes (Hospitalization, Other)
  Sender: CSL BEHRING
  Company Number: US-BEH-2025218974

PATIENT
  Sex: Female
  Weight: 1.5 kg

DRUGS (3)
  1. HUMAN IMMUNOGLOBULIN G [Suspect]
     Active Substance: HUMAN IMMUNOGLOBULIN G
     Route: 064
  2. DEXAMETHASONE [Suspect]
     Active Substance: DEXAMETHASONE
     Route: 062
  3. TERBUTALINE [Suspect]
     Active Substance: TERBUTALINE
     Route: 064

REACTIONS (5)
  - Heart block congenital [Unknown]
  - Atrioventricular block complete [Unknown]
  - Foetal distress syndrome [Unknown]
  - Bradycardia foetal [Unknown]
  - Foetal exposure during pregnancy [Unknown]
